FAERS Safety Report 4911778-2 (Version None)
Quarter: 2006Q1

REPORT INFORMATION
  Report Type: 
  Country: None (occurrence: None)
  Receive Date: 20060213
  Receipt Date: 20060213
  Transmission Date: 20060701
  Serious: No
  Sender: FDA-Public Use
  Company Number: None

PATIENT
  Age: 44 Year
  Sex: Female
  Weight: 77.1115 kg

DRUGS (1)
  1. ACCUTANE [Suspect]
     Indication: FOLLICULITIS
     Dosage: 0.5    1 X DAY
     Dates: start: 20021114, end: 20021115

REACTIONS (3)
  - CYSTITIS INTERSTITIAL [None]
  - DRUG TOXICITY [None]
  - URINARY BLADDER HAEMORRHAGE [None]
